FAERS Safety Report 14668118 (Version 1)
Quarter: 2018Q1

REPORT INFORMATION
  Report Type: Spontaneous
  Country: US (occurrence: US)
  Receive Date: 20180320
  Receipt Date: 20180320
  Transmission Date: 20180509
  Serious: No
  Sender: FDA-Public Use
  Company Number: None

PATIENT
  Age: 65 Year
  Sex: Female

DRUGS (1)
  1. TEMOZOLOMIDE CAP 180MG [Suspect]
     Active Substance: TEMOZOLOMIDE

REACTIONS (2)
  - Asthenia [None]
  - Fatigue [None]

NARRATIVE: CASE EVENT DATE: 20180315
